FAERS Safety Report 24551150 (Version 2)
Quarter: 2025Q1

REPORT INFORMATION
  Report Type: Spontaneous
  Country: TR (occurrence: TR)
  Receive Date: 20241025
  Receipt Date: 20250104
  Transmission Date: 20250409
  Serious: Yes (Death, Hospitalization, Other)
  Sender: ALEXION PHARMACEUTICALS
  Company Number: TR-ASTRAZENECA-202410TUR014694TR

PATIENT
  Age: 68 Year
  Weight: 70 kg

DRUGS (16)
  1. SOLIRIS [Suspect]
     Active Substance: ECULIZUMAB
     Indication: Myasthenia gravis
     Route: 065
  2. SOLIRIS [Suspect]
     Active Substance: ECULIZUMAB
     Route: 065
  3. SOLIRIS [Suspect]
     Active Substance: ECULIZUMAB
     Route: 065
  4. SOLIRIS [Suspect]
     Active Substance: ECULIZUMAB
     Route: 065
  5. SOLIRIS [Suspect]
     Active Substance: ECULIZUMAB
     Route: 065
  6. SOLIRIS [Suspect]
     Active Substance: ECULIZUMAB
     Route: 065
  7. SOLIRIS [Suspect]
     Active Substance: ECULIZUMAB
     Route: 065
  8. SOLIRIS [Suspect]
     Active Substance: ECULIZUMAB
     Route: 065
  9. MESTINON [Concomitant]
     Active Substance: PYRIDOSTIGMINE BROMIDE
     Route: 065
  10. MESTINON [Concomitant]
     Active Substance: PYRIDOSTIGMINE BROMIDE
     Route: 065
  11. DELTACORTRIL [Concomitant]
     Active Substance: PREDNISOLONE
     Dosage: 15 MILLIGRAM, QD
     Route: 065
  12. DELTACORTRIL [Concomitant]
     Active Substance: PREDNISOLONE
     Dosage: 15 MILLIGRAM, QD
     Route: 065
  13. DELTACORTRIL [Concomitant]
     Active Substance: PREDNISOLONE
     Dosage: 20 MILLIGRAM, QD
     Route: 065
  14. DELTACORTRIL [Concomitant]
     Active Substance: PREDNISOLONE
     Dosage: 20 MILLIGRAM, QD
     Route: 065
  15. HUMAN IMMUNOGLOBULIN G [Concomitant]
     Active Substance: HUMAN IMMUNOGLOBULIN G
     Route: 042
  16. HUMAN IMMUNOGLOBULIN G [Concomitant]
     Active Substance: HUMAN IMMUNOGLOBULIN G

REACTIONS (9)
  - Lower respiratory tract infection [Fatal]
  - Cardiac failure [Fatal]
  - Respiratory alkalosis [Fatal]
  - Oedema peripheral [Fatal]
  - Chills [Fatal]
  - Pyrexia [Fatal]
  - Systemic infection [Unknown]
  - Cough [Unknown]
  - Productive cough [Unknown]
